FAERS Safety Report 4693918-6 (Version None)
Quarter: 2005Q2

REPORT INFORMATION
  Report Type: 
  Country: None (occurrence: None)
  Receive Date: 20050616
  Receipt Date: 20050602
  Transmission Date: 20051028
  Serious: Yes (Hospitalization, Other)
  Sender: FDA-Public Use
  Company Number: HQWYE789219MAY05

PATIENT
  Age: 76 Year
  Sex: Male
  Weight: 73.6 kg

DRUGS (32)
  1. RAPAMUNE [Suspect]
     Indication: PROPHYLAXIS AGAINST TRANSPLANT REJECTION
     Dosage: SEE IMAGE, ORAL
     Route: 048
     Dates: start: 20050131, end: 20050501
  2. RAPAMUNE [Suspect]
     Indication: PROPHYLAXIS AGAINST TRANSPLANT REJECTION
     Dosage: SEE IMAGE, ORAL
     Route: 048
     Dates: start: 20050501
  3. RAPAMUNE [Suspect]
  4. RAPAMUNE [Suspect]
  5. PREDNISONE [Suspect]
     Indication: PROPHYLAXIS AGAINST TRANSPLANT REJECTION
     Dosage: 5 MG 1X PER 1 DAY, ORAL
     Route: 048
  6. PROGRAF [Suspect]
     Indication: PROPHYLAXIS AGAINST TRANSPLANT REJECTION
     Dosage: 2 MG 2X PER 1 DAY, ORAL
     Route: 048
  7. ZENAPAX [Suspect]
     Indication: PROPHYLAXIS AGAINST TRANSPLANT REJECTION
     Dosage: ORAL
     Route: 048
  8. LANTUS [Concomitant]
  9. NOVOLOG [Concomitant]
  10. FLOMAX [Concomitant]
  11. FLONASE [Concomitant]
  12. COMBIVENT [Concomitant]
  13. ALBUTEROL [Concomitant]
  14. FLOVENT [Concomitant]
  15. PROCRIT [Concomitant]
  16. PRAVACHOL [Concomitant]
  17. NEXIUM [Concomitant]
  18. BACTRIM [Concomitant]
  19. NORVASC [Concomitant]
  20. ATENOLOL [Concomitant]
  21. CIPRO (CIPROFLOXACINI HYDROCHLORIDE) [Concomitant]
  22. PANCREASE (PANCRELIPASE) [Concomitant]
  23. MAGNESIUM OXIDE (MAGNESIUM OXIDE) [Concomitant]
  24. SODIUM BICARBONATE IN PLASTIC CONTAINER [Concomitant]
  25. DIGOXIN [Concomitant]
  26. BUMEX [Concomitant]
  27. THERAGRAN-M (MINERALS NOS/VITAMINS NOS) [Concomitant]
  28. COUMADIN [Concomitant]
  29. DOXAZOSIN (DOXAZOSIN) [Concomitant]
  30. PROTONIX [Concomitant]
  31. .. [Concomitant]
  32. .. [Concomitant]

REACTIONS (12)
  - BLOOD BICARBONATE DECREASED [None]
  - BLOOD CHLORIDE INCREASED [None]
  - BLOOD GLUCOSE INCREASED [None]
  - BLOOD PHOSPHORUS ABNORMAL [None]
  - DEEP VEIN THROMBOSIS [None]
  - DIALYSIS [None]
  - INTERNATIONAL NORMALISED RATIO INCREASED [None]
  - KIDNEY TRANSPLANT REJECTION [None]
  - OEDEMA PERIPHERAL [None]
  - PROTHROMBIN TIME PROLONGED [None]
  - PYELONEPHRITIS [None]
  - RENAL INTERSTITIAL FIBROSIS [None]
